FAERS Safety Report 4364530-3 (Version None)
Quarter: 2004Q2

REPORT INFORMATION
  Report Type: 
  Country: None (occurrence: None)
  Receive Date: 20040519
  Receipt Date: 20040507
  Transmission Date: 20050107
  Serious: Yes (Hospitalization)
  Sender: FDA-Public Use
  Company Number: 6008776

PATIENT
  Age: 68 Year
  Sex: Female

DRUGS (4)
  1. CONCOR COR (TABLETS) (BISOPROLOL) [Suspect]
     Indication: MYOCARDIAL ISCHAEMIA
     Dosage: 2,500 MG (2,5 MG, 1 IN 1D); ORAL
     Route: 048
     Dates: start: 20030701, end: 20031006
  2. ASS 100 ISIS(TABLETS) (ACETYLSALICYLIC ACID) [Suspect]
     Indication: MYOCARDIAL ISCHAEMIA
     Dosage: 100,0000MG 100 MG, 1 IN 1 D); ORAL
     Route: 048
     Dates: start: 20020401, end: 20031006
  3. RIFUN 20  MG (TABLETS) PANTOPRAZOLE SODIUM) [Concomitant]
  4. THEOPHYLLIN STADA 200 RETARD (CAPSULES) (THEOPHYLLINE) [Concomitant]

REACTIONS (2)
  - DRUG INTERACTION [None]
  - HAEMOPTYSIS [None]
